FAERS Safety Report 15790585 (Version 1)
Quarter: 2019Q1

REPORT INFORMATION
  Report Type: Spontaneous
  Country: US (occurrence: US)
  Receive Date: 20190104
  Receipt Date: 20190104
  Transmission Date: 20190417
  Serious: Yes (Death, Hospitalization)
  Sender: FDA-Public Use
  Company Number: US-BAYER-2019-003526

PATIENT
  Age: 37 Year
  Sex: Male

DRUGS (5)
  1. AMLODIPINE [Suspect]
     Active Substance: AMLODIPINE BESYLATE
  2. HYDROXYZINE [Suspect]
     Active Substance: HYDROXYZINE HYDROCHLORIDE
  3. ESTRADIOL. [Suspect]
     Active Substance: ESTRADIOL
  4. MECLIZINE [Suspect]
     Active Substance: MECLIZINE HYDROCHLORIDE
  5. LORATADINE. [Suspect]
     Active Substance: LORATADINE
     Route: 048

REACTIONS (1)
  - Toxicity to various agents [Fatal]
